FAERS Safety Report 4653729-4 (Version None)
Quarter: 2005Q2

REPORT INFORMATION
  Report Type: 
  Country: None (occurrence: None)
  Receive Date: 20050505
  Receipt Date: 20050427
  Transmission Date: 20051028
  Serious: Yes (Death, Other)
  Sender: FDA-Public Use
  Company Number: CH-BRISTOL-MYERS SQUIBB COMPANY-12951091

PATIENT
  Age: 90 Year
  Sex: Female

DRUGS (6)
  1. BUSPAR [Suspect]
     Route: 048
     Dates: start: 20040503, end: 20040910
  2. RISPERDAL [Suspect]
     Dosage: DOSE VALUE:  1.5 MG-2.5 MG
     Route: 048
     Dates: start: 20040420, end: 20040910
  3. REMINYL [Suspect]
     Dosage: DOSE VALUE:  8 MG-26 MG AND 24 MG
     Route: 048
     Dates: start: 20040427, end: 20040910
  4. CONVULEX [Suspect]
     Dosage: DOSE VALUE:  100 MG-200 MG
     Route: 048
     Dates: start: 20040307, end: 20040910
  5. REMERON [Suspect]
     Route: 048
     Dates: start: 20040426, end: 20040910
  6. PARAGAR [Suspect]
     Dates: start: 20040903, end: 20040910

REACTIONS (6)
  - ARRHYTHMIA [None]
  - BLOOD PRESSURE INCREASED [None]
  - COMA [None]
  - DEATH [None]
  - POSTICTAL STATE [None]
  - SALIVARY HYPERSECRETION [None]
